FAERS Safety Report 9927838 (Version 1)
Quarter: 2014Q1

REPORT INFORMATION
  Report Type: Report from Study
  Country: US (occurrence: US)
  Receive Date: 20140227
  Receipt Date: 20140227
  Transmission Date: 20141002
  Serious: Yes (Other)
  Sender: FDA-Public Use
  Company Number: US-ROCHE-1328087

PATIENT
  Age: 77 Year
  Sex: Female
  Weight: 87.44 kg

DRUGS (25)
  1. AVASTIN [Suspect]
     Indication: SMALL INTESTINE CARCINOMA
     Dosage: DOSE: 440MG
     Route: 042
     Dates: start: 20121128
  2. AVASTIN [Suspect]
     Dosage: DOSE: 440MG
     Route: 042
     Dates: start: 20130220
  3. OXALIPLATIN [Concomitant]
     Route: 042
     Dates: start: 20121128
  4. FUSILEV [Concomitant]
     Route: 042
     Dates: start: 20121128
  5. 5-FU [Concomitant]
     Route: 042
     Dates: start: 20121128
  6. 5-FU [Concomitant]
     Route: 042
     Dates: start: 20121128
  7. PALONOSETRON [Concomitant]
     Route: 042
     Dates: start: 20121128
  8. DECADRON [Concomitant]
     Route: 042
     Dates: start: 20121128
  9. CALCIUM GLUCONATE [Concomitant]
     Route: 042
     Dates: start: 20121128
  10. MAGNESIUM SULFATE [Concomitant]
     Route: 042
     Dates: start: 20121128
  11. ATIVAN [Concomitant]
     Route: 065
  12. EMLA CREAM [Concomitant]
     Route: 061
  13. FUROSEMIDE [Concomitant]
     Route: 065
  14. LEVAQUIN [Concomitant]
     Dosage: /100 ML
     Route: 042
  15. LEVOXYL [Concomitant]
     Route: 065
  16. MEDROL [Concomitant]
     Route: 065
  17. MILK OF MAGNESIA [Concomitant]
     Dosage: /5 ML
     Route: 048
  18. MORPHINE [Concomitant]
     Dosage: /5 ML
     Route: 048
  19. TYLENOL ARTHRITIS [Concomitant]
     Route: 065
  20. VITAMIN D3 [Concomitant]
     Dosage: 1000 UNITS
     Route: 065
  21. WHEATGRASS [Concomitant]
     Route: 065
  22. ZOFRAN [Concomitant]
     Route: 065
  23. INSULIN [Concomitant]
     Route: 058
  24. ARANESP [Concomitant]
  25. CLONIDINE [Concomitant]
     Route: 065

REACTIONS (20)
  - Embolism venous [Recovered/Resolved]
  - Venous thrombosis [Recovered/Resolved]
  - Renal failure acute [Recovered/Resolved]
  - Anaemia [Unknown]
  - Fatigue [Unknown]
  - Blood pressure increased [Unknown]
  - Blood glucose increased [Unknown]
  - Palmar-plantar erythrodysaesthesia syndrome [Recovered/Resolved]
  - Pain [Unknown]
  - Metastases to lung [Unknown]
  - Metastases to lymph nodes [Unknown]
  - Metastases to lymph nodes [Unknown]
  - Metastases to liver [Unknown]
  - Duodenal obstruction [Unknown]
  - Hypertension [Unknown]
  - Dyspnoea [Recovered/Resolved]
  - Chest discomfort [Recovered/Resolved]
  - Hypotension [Recovered/Resolved]
  - Bile duct obstruction [Unknown]
  - Gastrooesophageal reflux disease [Unknown]
